FAERS Safety Report 5583905-8 (Version None)
Quarter: 2008Q1

REPORT INFORMATION
  Report Type: 
  Country: None (occurrence: None)
  Receive Date: 20080103
  Receipt Date: 20070924
  Transmission Date: 20080703
  Serious: No
  Sender: FDA-Public Use
  Company Number: 8027078

PATIENT
  Age: 19 Year
  Sex: Female

DRUGS (9)
  1. KEPPRA [Suspect]
     Indication: EPILEPSY
     Dosage: 3000 MG/D
  2. LAMICTAL [Concomitant]
  3. ALLEGRA [Concomitant]
  4. SINGULAIR [Concomitant]
  5. FOLIC ACID [Concomitant]
  6. PRENATAL VITAMINS [Concomitant]
  7. VITAMIN K [Concomitant]
  8. ALBUTEROL [Concomitant]
  9. IRON [Concomitant]

REACTIONS (3)
  - ANAEMIA [None]
  - DRUG EXPOSURE DURING PREGNANCY [None]
  - PROLONGED PREGNANCY [None]
